FAERS Safety Report 10778029 (Version 1)
Quarter: 2015Q1

REPORT INFORMATION
  Report Type: Spontaneous
  Country: US (occurrence: US)
  Receive Date: 20150209
  Receipt Date: 20150209
  Transmission Date: 20150721
  Serious: No
  Sender: FDA-Public Use
  Company Number: US-AMGEN-USASP2014022346

PATIENT
  Age: 55 Year
  Sex: Female

DRUGS (11)
  1. HERCEPTIN [Suspect]
     Active Substance: TRASTUZUMAB
     Indication: BREAST CANCER FEMALE
     Dosage: 600 MG, 1 IN 1 CYCLICAL
     Route: 042
     Dates: start: 20120924
  2. NEULASTA [Suspect]
     Active Substance: PEGFILGRASTIM
     Indication: BREAST CANCER FEMALE
     Dosage: 6 MG, 07/NOV/2011
     Route: 065
     Dates: start: 20121012
  3. HERCEPTIN [Suspect]
     Active Substance: TRASTUZUMAB
     Dosage: 448 MG, 1 IN 1 CYCLICAL
     Route: 042
     Dates: start: 20121012
  4. HERCEPTIN [Suspect]
     Active Substance: TRASTUZUMAB
     Dosage: 457 MG, 1 IN 1 CYCLICAL
     Route: 042
     Dates: start: 20121107
  5. CARBOPLATIN. [Concomitant]
     Active Substance: CARBOPLATIN
     Dosage: 560 MG, UNK
     Route: 042
  6. CARBOPLATIN. [Concomitant]
     Active Substance: CARBOPLATIN
     Indication: BREAST CANCER
     Dosage: 550 MG, UNK
     Route: 042
  7. BENADRYL [Concomitant]
     Active Substance: DIPHENHYDRAMINE HYDROCHLORIDE
     Indication: BREAST CANCER
     Dosage: 50 MG, UNK
  8. DECADRON [Concomitant]
     Active Substance: DEXAMETHASONE
     Indication: BREAST CANCER
     Dosage: 20 MG, UNK
  9. TAXOTERE [Concomitant]
     Active Substance: DOCETAXEL
     Indication: BREAST CANCER
     Dosage: UNK
     Route: 042
  10. ALOXI [Concomitant]
     Active Substance: PALONOSETRON HYDROCHLORIDE
     Dosage: 250 MG, UNK
  11. PEPCID [Concomitant]
     Active Substance: FAMOTIDINE
     Indication: BREAST CANCER
     Dosage: 20 MG, UNK

REACTIONS (1)
  - Fatigue [Unknown]
